FAERS Safety Report 14994007 (Version 2)
Quarter: 2018Q2

REPORT INFORMATION
  Report Type: Spontaneous
  Country: FR (occurrence: FR)
  Receive Date: 20180611
  Receipt Date: 20180619
  Transmission Date: 20180711
  Serious: Yes (Hospitalization)
  Sender: FDA-Public Use
  Company Number: FR-TEVA-2018-FR-904705

PATIENT
  Age: 90 Year
  Sex: Female
  Weight: 52 kg

DRUGS (8)
  1. VANCOMYCINE [Concomitant]
     Active Substance: VANCOMYCIN
     Route: 065
  2. SPASFON [Concomitant]
     Route: 065
  3. SERETIDE [Concomitant]
     Active Substance: FLUTICASONE PROPIONATE\SALMETEROL XINAFOATE
     Route: 065
  4. PARACETAMOL [Concomitant]
     Active Substance: ACETAMINOPHEN
     Route: 065
  5. ZOPHREN 8 MG, COMPRIM? PELLICUL? [Concomitant]
  6. AMOXICILLIN. [Suspect]
     Active Substance: AMOXICILLIN
     Indication: ANTIBIOTIC THERAPY
     Dosage: 8 GRAM DAILY;
     Route: 048
     Dates: start: 20170925
  7. OROZAMUDOL 50 MG, COMPRIM? ORODISPERSIBLE [Concomitant]
     Active Substance: TRAMADOL
     Route: 065
  8. CALCIPARINE [Concomitant]
     Active Substance: HEPARIN CALCIUM
     Route: 065

REACTIONS (2)
  - Acute kidney injury [Recovered/Resolved]
  - Crystal nephropathy [Recovering/Resolving]

NARRATIVE: CASE EVENT DATE: 20171003
